FAERS Safety Report 21521022 (Version 1)
Quarter: 2022Q4

REPORT INFORMATION
  Report Type: Spontaneous
  Country: FR (occurrence: FR)
  Receive Date: 20221028
  Receipt Date: 20221028
  Transmission Date: 20230112
  Serious: Yes (Hospitalization)
  Sender: FDA-Public Use
  Company Number: None

PATIENT
  Age: 13 Year
  Sex: Male
  Weight: 53 kg

DRUGS (5)
  1. KETOPROFEN [Suspect]
     Active Substance: KETOPROFEN
     Indication: Poisoning deliberate
     Dosage: DURATION : 1 DAY, UNIT DOSE :   1200MG, FREQUENCY TIME : 1 TOTAL
     Route: 065
     Dates: start: 20220922, end: 20220922
  2. CLOTIAZEPAM [Concomitant]
     Active Substance: CLOTIAZEPAM
     Indication: Poisoning deliberate
     Dosage: UNIT DOSE :  100MG, FREQUENCY TIME : 1 TOTAL, DURATION : 1 DAY
     Dates: start: 20220922, end: 20220922
  3. OXOMEMAZINE HYDROCHLORIDE [Concomitant]
     Active Substance: OXOMEMAZINE HYDROCHLORIDE
     Indication: Poisoning deliberate
     Dosage: DURATION : 1 DAY
     Dates: start: 20220922, end: 20220922
  4. SERTRALINE HYDROCHLORIDE [Concomitant]
     Active Substance: SERTRALINE HYDROCHLORIDE
     Indication: Poisoning deliberate
     Dosage: DURATION : 1 DAYS
     Dates: start: 20220922, end: 20220922
  5. ACETAMINOPHEN [Concomitant]
     Active Substance: ACETAMINOPHEN
     Indication: Poisoning deliberate
     Dosage: UNIT DOSE :   2 GRAM, FREQUENCY TIME : 1 TOTAL, DURATION : 1 DAYS
     Dates: start: 20220922, end: 20220922

REACTIONS (2)
  - Acute kidney injury [Recovered/Resolved]
  - Toxicity to various agents [Recovered/Resolved]

NARRATIVE: CASE EVENT DATE: 20220922
